FAERS Safety Report 5093860-5 (Version None)
Quarter: 2006Q3

REPORT INFORMATION
  Report Type: 
  Country: None (occurrence: None)
  Receive Date: 20060831
  Receipt Date: 20060824
  Transmission Date: 20061208
  Serious: Yes (Life-Threatening)
  Sender: FDA-Public Use
  Company Number: JP-BRISTOL-MYERS SQUIBB COMPANY-13487202

PATIENT
  Age: 70 Year
  Sex: Male

DRUGS (3)
  1. BLEOMYCIN [Suspect]
     Indication: TESTICULAR SEMINOMA (PURE)
     Dosage: TOTAL DOSE 240MG
     Route: 042
     Dates: start: 20060606, end: 20060808
  2. CISPLATIN [Suspect]
     Dates: start: 20060605, end: 20060804
  3. ETOPOSIDE [Suspect]
     Dates: start: 20060605, end: 20060804

REACTIONS (1)
  - PULMONARY FIBROSIS [None]
